FAERS Safety Report 6963458-X (Version None)
Quarter: 2010Q3

REPORT INFORMATION
  Report Type: 
  Country: None (occurrence: None)
  Receive Date: 20100902
  Receipt Date: 20100825
  Transmission Date: 20110219
  Serious: Yes (Hospitalization)
  Sender: FDA-Public Use
  Company Number: B0672490A

PATIENT
  Sex: Male

DRUGS (5)
  1. MELPHALAN [Suspect]
     Indication: MULTIPLE MYELOMA
     Dosage: 16MG PER DAY
     Dates: start: 20100714, end: 20100717
  2. THALIDOMIDE [Suspect]
     Indication: MULTIPLE MYELOMA
     Dosage: 100MG PER DAY
     Route: 048
     Dates: start: 20100714
  3. PREDNISONE [Suspect]
     Indication: MULTIPLE MYELOMA
     Dosage: 135MG PER DAY
     Dates: start: 20100714, end: 20100717
  4. SIMVASTATIN [Concomitant]
     Dates: start: 20070101
  5. KARDEGIC [Concomitant]
     Indication: THROMBOSIS PROPHYLAXIS
     Dates: start: 20091108

REACTIONS (11)
  - ARRHYTHMIA [None]
  - COUGH [None]
  - DYSPNOEA [None]
  - HYPERVENTILATION [None]
  - HYPOCAPNIA [None]
  - HYPONATRAEMIA [None]
  - HYPOXIA [None]
  - LEGIONELLA INFECTION [None]
  - LUNG DISORDER [None]
  - LYMPHOPENIA [None]
  - RALES [None]
